FAERS Safety Report 7740928-8 (Version None)
Quarter: 2011Q3

REPORT INFORMATION
  Report Type: 
  Country: None (occurrence: None)
  Receive Date: 20110909
  Receipt Date: 20110826
  Transmission Date: 20111222
  Serious: Yes (Disabling, Other)
  Sender: FDA-Public Use
  Company Number: PHHY2011CR76650

PATIENT
  Age: 79 Year
  Sex: Female

DRUGS (9)
  1. CORYOL [Concomitant]
     Dosage: UNK UKN, UNK
  2. ALPRAZOLAM [Concomitant]
  3. PROTON [Concomitant]
     Dosage: UNK UKN, UNK
  4. DIOVAN HCT [Suspect]
     Indication: HYPERTENSION
     Dosage: 1 DF (320/25 MG) DAILY
     Route: 048
     Dates: start: 20100901
  5. RASILEZ [Suspect]
     Indication: HYPERTENSION
     Dosage: 300 MG, DAILY
     Route: 048
     Dates: start: 20100901
  6. FUROSEMIDE [Concomitant]
     Dosage: UNK UKN, UNK
  7. PLIBEX [Concomitant]
     Dosage: UNK UKN, UNK
  8. METFORMIN [Concomitant]
     Dosage: UNK UKN, UNK
  9. ARCIBEN [Concomitant]
     Dosage: 20 MG, UNK

REACTIONS (2)
  - SCIATICA [None]
  - GAIT DISTURBANCE [None]
